FAERS Safety Report 7209611-1 (Version None)
Quarter: 2011Q1

REPORT INFORMATION
  Report Type: 
  Country: None (occurrence: None)
  Receive Date: 20110104
  Receipt Date: 20101227
  Transmission Date: 20110831
  Serious: Yes (Death, Other)
  Sender: FDA-Public Use
  Company Number: US-NAPPMUNDI-USA-2010-0048425

PATIENT
  Age: 25 Year
  Sex: Male

DRUGS (2)
  1. OXYCONTIN [Suspect]
     Indication: DRUG ABUSE
  2. COCAINE [Suspect]
     Indication: DRUG ABUSE

REACTIONS (2)
  - SUBSTANCE ABUSE [None]
  - MULTIPLE DRUG OVERDOSE [None]
